FAERS Safety Report 10164090 (Version 2)
Quarter: 2014Q2

REPORT INFORMATION
  Report Type: Spontaneous
  Country: US (occurrence: US)
  Receive Date: 20140510
  Receipt Date: 20140510
  Transmission Date: 20141212
  Serious: No
  Sender: FDA-Public Use
  Company Number: US-BRISTOL-MYERS SQUIBB COMPANY-19920040

PATIENT
  Age: 76 Year
  Sex: Male
  Weight: 82.54 kg

DRUGS (11)
  1. BYETTA PEN DISPOSABLE [Suspect]
     Indication: TYPE 2 DIABETES MELLITUS
     Dosage: 250ML/5MCG
     Dates: start: 201303
  2. METFORMIN HCL TABS [Suspect]
     Dosage: 2TABLETS IN THE AM AND 1 1/2 TABLET IN THE PM
  3. GLYBURIDE [Suspect]
  4. PRADAXA [Concomitant]
  5. SOTALOL [Concomitant]
  6. FENOFIBRATE [Concomitant]
  7. FLOMAX [Concomitant]
  8. OMEPRAZOLE [Concomitant]
  9. METFORMIN [Concomitant]
  10. LIPITOR [Concomitant]
  11. DIABETA [Concomitant]

REACTIONS (6)
  - Expired product administered [Recovered/Resolved]
  - Injection site nodule [Unknown]
  - Blood glucose fluctuation [Unknown]
  - Injection site haemorrhage [Unknown]
  - Injection site bruising [Recovered/Resolved]
  - Injection site pain [Recovered/Resolved]
